FAERS Safety Report 24334938 (Version 1)
Quarter: 2024Q3

REPORT INFORMATION
  Report Type: Spontaneous
  Country: ES (occurrence: ES)
  Receive Date: 20240918
  Receipt Date: 20240918
  Transmission Date: 20241016
  Serious: Yes (Death, Hospitalization)
  Sender: PURDUE
  Company Number: ES-PURDUE-USA-2024-0312032

PATIENT
  Age: 88 Year
  Sex: Female

DRUGS (1)
  1. MORPHINE SULFATE [Suspect]
     Active Substance: MORPHINE SULFATE
     Indication: Cancer pain
     Dosage: 10 MILLIGRAM, Q12H (1-0-1)
     Route: 048
     Dates: start: 20240804, end: 20240805

REACTIONS (4)
  - Lactic acidosis [Fatal]
  - Hypoxia [Fatal]
  - Depressed level of consciousness [Fatal]
  - Pneumonia aspiration [Fatal]

NARRATIVE: CASE EVENT DATE: 20240805
